FAERS Safety Report 13933520 (Version 1)
Quarter: 2017Q3

REPORT INFORMATION
  Report Type: Report from Study
  Country: CN (occurrence: CN)
  Receive Date: 20170904
  Receipt Date: 20170904
  Transmission Date: 20171127
  Serious: Yes (Other)
  Sender: FDA-Public Use
  Company Number: PHHY2017CN125581

PATIENT
  Age: 69 Year
  Sex: Female
  Weight: 47 kg

DRUGS (3)
  1. TYKERB [Suspect]
     Active Substance: LAPATINIB DITOSYLATE
     Indication: BREAST CANCER
     Dosage: 1250 MG, QD
     Route: 048
     Dates: start: 20170116, end: 20170226
  2. XELODA [Suspect]
     Active Substance: CAPECITABINE
     Indication: BREAST CANCER
     Dosage: 3 DF, BID
     Route: 048
     Dates: start: 20170116
  3. HERCEPTIN [Concomitant]
     Active Substance: TRASTUZUMAB
     Indication: BREAST CANCER
     Dosage: 318 MG, ONCE/21 DAYS
     Route: 042
     Dates: start: 20170114

REACTIONS (6)
  - Diarrhoea [Recovered/Resolved]
  - Cachexia [Recovering/Resolving]
  - Hepatomegaly [Not Recovered/Not Resolved]
  - Concomitant disease progression [Recovering/Resolving]
  - Metastases to lung [Recovering/Resolving]
  - Cough [Recovering/Resolving]

NARRATIVE: CASE EVENT DATE: 201701
